FAERS Safety Report 9602493 (Version 1)
Quarter: 2013Q4

REPORT INFORMATION
  Report Type: Spontaneous
  Country: JP (occurrence: JP)
  Receive Date: 20131007
  Receipt Date: 20131007
  Transmission Date: 20140711
  Serious: Yes (Death)
  Sender: FDA-Public Use
  Company Number: JP-NOVOPROD-388701

PATIENT
  Age: 41 Year
  Sex: Female

DRUGS (6)
  1. NOVORAPID CHU FLEXPEN [Suspect]
     Indication: TYPE 1 DIABETES MELLITUS
     Dosage: UNK
     Route: 058
  2. NOVORAPID CHU FLEXPEN [Suspect]
     Dosage: UNK
     Route: 058
     Dates: start: 201204
  3. LEVEMIR CHU FLEXPEN [Suspect]
     Indication: TYPE 1 DIABETES MELLITUS
     Dosage: UNK
     Route: 058
  4. LEVEMIR CHU FLEXPEN [Suspect]
     Dosage: UNK
     Route: 058
     Dates: start: 201204
  5. LANTUS [Suspect]
     Indication: TYPE 1 DIABETES MELLITUS
     Dosage: UNK
     Route: 058
  6. LANTUS [Suspect]
     Dosage: UNK
     Route: 058
     Dates: start: 201204

REACTIONS (2)
  - Posterior reversible encephalopathy syndrome [Fatal]
  - Blood glucose fluctuation [Unknown]
